FAERS Safety Report 5313326-4 (Version None)
Quarter: 2007Q1

REPORT INFORMATION
  Report Type: 
  Country: None (occurrence: None)
  Receive Date: 20070201
  Receipt Date: 20061211
  Transmission Date: 20070707
  Serious: Yes (Hospitalization)
  Sender: FDA-Public Use
  Company Number: 150796USA

PATIENT
  Age: 71 Year
  Sex: Female

DRUGS (6)
  1. PRAVASTATIN [Suspect]
     Indication: BLOOD CHOLESTEROL INCREASED
     Dosage: 40 MG (40 MG,1 IN 1 D), ORAL
     Route: 048
     Dates: start: 20060601, end: 20060901
  2. WARFARIN SODIUM [Concomitant]
  3. SEVELAMER [Concomitant]
  4. FISH OIL [Concomitant]
  5. SUCRALFATE [Concomitant]
  6. CALCIUM CARBONATE [Concomitant]

REACTIONS (4)
  - AMNESIA [None]
  - HYPERSENSITIVITY [None]
  - MUSCULAR WEAKNESS [None]
  - VISION BLURRED [None]
